FAERS Safety Report 8245457-3 (Version None)
Quarter: 2012Q1

REPORT INFORMATION
  Report Type: 
  Country: None (occurrence: None)
  Receive Date: 20120329
  Receipt Date: 20120327
  Transmission Date: 20120608
  Serious: Yes (Hospitalization, Other)
  Sender: FDA-Public Use
  Company Number: US-MERCK-1201USA02036

PATIENT
  Age: 54 Year
  Sex: Female
  Weight: 80 kg

DRUGS (2)
  1. PRINIVIL [Suspect]
     Indication: HYPERTENSION
     Route: 048
     Dates: start: 20110601, end: 20111201
  2. METOPROLOL [Concomitant]
     Route: 065

REACTIONS (4)
  - FOOD INTOLERANCE [None]
  - BACK PAIN [None]
  - PANCREATITIS [None]
  - PANCREATIC CARCINOMA METASTATIC [None]
